FAERS Safety Report 7481933-9 (Version None)
Quarter: 2011Q2

REPORT INFORMATION
  Report Type: 
  Country: None (occurrence: None)
  Receive Date: 20110516
  Receipt Date: 20110510
  Transmission Date: 20111010
  Serious: Yes (Hospitalization)
  Sender: FDA-Public Use
  Company Number: DE-ELI_LILLY_AND_COMPANY-DE201104007375

PATIENT
  Age: 70 Year
  Sex: Male
  Weight: 76 kg

DRUGS (14)
  1. ERBITUX [Suspect]
     Indication: NON-SMALL CELL LUNG CANCER
     Dosage: 400 MG/M2, WEEKLY (1/W)
     Route: 042
     Dates: start: 20110420
  2. CARBOPLATIN [Suspect]
     Indication: NON-SMALL CELL LUNG CANCER
     Dosage: AUC 5
     Route: 042
     Dates: start: 20110420
  3. ACC                                /00082801/ [Concomitant]
  4. PANTOPRAZOLE [Concomitant]
  5. ASPIRIN [Concomitant]
     Indication: HYPERTENSION
  6. SPIRIVA [Concomitant]
  7. SYMBICORT [Concomitant]
  8. NEBIVOLOL HCL [Concomitant]
  9. BERODUAL [Concomitant]
  10. GEMCITABINE HYDROCHLORIDE [Suspect]
     Indication: NON-SMALL CELL LUNG CANCER
     Dosage: 1200 MG/M2, 1 IN 3 WK
     Route: 042
     Dates: start: 20110420
  11. SIMVASTATIN [Concomitant]
  12. ESCITALOPRAM [Concomitant]
  13. METOCLOPRAMIDE [Concomitant]
  14. ONDANSETRON [Concomitant]

REACTIONS (1)
  - DUODENAL ULCER [None]
